FAERS Safety Report 7252039-9 (Version None)
Quarter: 2011Q1

REPORT INFORMATION
  Report Type: 
  Country: None (occurrence: None)
  Receive Date: 20110128
  Receipt Date: 20100125
  Transmission Date: 20110831
  Serious: No
  Sender: FDA-Public Use
  Company Number: US-ABBOTT-10P-163-0618919-00

PATIENT
  Sex: Female

DRUGS (1)
  1. HUMIRA [Suspect]
     Indication: PSORIATIC ARTHROPATHY
     Route: 058
     Dates: start: 20090101, end: 20100114

REACTIONS (5)
  - BRONCHITIS [None]
  - UPPER-AIRWAY COUGH SYNDROME [None]
  - LACERATION [None]
  - THROAT IRRITATION [None]
  - LYMPHADENOPATHY [None]
